FAERS Safety Report 9277970 (Version 1)
Quarter: 2013Q2

REPORT INFORMATION
  Report Type: Spontaneous
  Country: US (occurrence: US)
  Receive Date: 20130508
  Receipt Date: 20130508
  Transmission Date: 20140414
  Serious: No
  Sender: FDA-Public Use
  Company Number: 2008BI020404

PATIENT
  Age: 38 Year
  Sex: Male

DRUGS (1)
  1. TYSABRI [Suspect]
     Indication: MULTIPLE SCLEROSIS
     Route: 042
     Dates: start: 20080609

REACTIONS (18)
  - Diplopia [Unknown]
  - Metamorphopsia [Unknown]
  - Vision blurred [Unknown]
  - Myalgia [Unknown]
  - Back pain [Not Recovered/Not Resolved]
  - Hypoaesthesia [Unknown]
  - Memory impairment [Not Recovered/Not Resolved]
  - Fibromyalgia [Not Recovered/Not Resolved]
  - Spinal disorder [Unknown]
  - Fall [Recovered/Resolved]
  - Weight bearing difficulty [Not Recovered/Not Resolved]
  - Cataract [Not Recovered/Not Resolved]
  - Visual field defect [Not Recovered/Not Resolved]
  - Mobility decreased [Not Recovered/Not Resolved]
  - Dysstasia [Not Recovered/Not Resolved]
  - Multiple sclerosis [Not Recovered/Not Resolved]
  - Chest pain [Unknown]
  - Arthralgia [Unknown]
